FAERS Safety Report 9052647 (Version 5)
Quarter: 2013Q2

REPORT INFORMATION
  Report Type: Spontaneous
  Country: JP (occurrence: JP)
  Receive Date: 20130207
  Receipt Date: 20130430
  Transmission Date: 20140414
  Serious: Yes (Hospitalization, Other)
  Sender: FDA-Public Use
  Company Number: JP-PFIZER INC-2013043942

PATIENT
  Age: 63 Year
  Sex: Male

DRUGS (11)
  1. SEIBULE [Suspect]
     Indication: TYPE 2 DIABETES MELLITUS
     Dosage: 50 MG, 3X/DAY
     Route: 048
     Dates: start: 20121221, end: 20130124
  2. PLAVIX [Suspect]
     Indication: MYOCARDIAL ISCHAEMIA
     Dosage: 75 MG, UNK
     Route: 048
     Dates: start: 20121220, end: 20130124
  3. CRESTOR [Suspect]
     Indication: HYPERLIPIDAEMIA
     Dosage: 2.5 MG, UNK
     Route: 048
     Dates: start: 20121221, end: 20130124
  4. SIGMART [Suspect]
     Indication: ANGINA PECTORIS
     Dosage: UNK
     Route: 048
     Dates: start: 20121220, end: 20130124
  5. BAYASPIRIN [Concomitant]
     Dosage: 100 MG
  6. TAKEPRON [Concomitant]
     Dosage: UNK
  7. MYONAL [Concomitant]
     Dosage: UNK
  8. CALTAN [Concomitant]
     Dosage: UNK
  9. ALEISON [Concomitant]
     Dosage: UNK
     Dates: start: 20121221, end: 20130124
  10. ALINAMIN F [Concomitant]
     Dosage: UNK
     Dates: start: 20121229
  11. ACETYLSALICYLIC ACID [Concomitant]
     Dosage: LESS THAN OR EQUAL TO 100 MG, UNK

REACTIONS (2)
  - Hepatitis fulminant [Recovered/Resolved]
  - Jaundice [Unknown]
